FAERS Safety Report 7816799-8 (Version None)
Quarter: 2011Q4

REPORT INFORMATION
  Report Type: 
  Country: None (occurrence: None)
  Receive Date: 20111017
  Receipt Date: 20111011
  Transmission Date: 20120403
  Serious: Yes (Hospitalization)
  Sender: FDA-Public Use
  Company Number: US-ACTELION-A-NJ2011-54418

PATIENT

DRUGS (4)
  1. EPOPROSTENOL SODIUM [Suspect]
     Dosage: 17 NG/KG, PER MIN
     Route: 041
     Dates: start: 20110805, end: 20110101
  2. EPOPROSTENOL SODIUM [Suspect]
     Indication: PULMONARY ARTERIAL HYPERTENSION
     Dosage: 11.75 NG/KG, PER MIN
     Route: 041
     Dates: start: 20110908
  3. SILDENAFIL CITRATE [Concomitant]
  4. LOVENOX [Concomitant]

REACTIONS (5)
  - INJECTION SITE PRURITUS [None]
  - STAPHYLOCOCCAL INFECTION [None]
  - FLUSHING [None]
  - NAUSEA [None]
  - PAIN IN JAW [None]
